FAERS Safety Report 18360853 (Version 3)
Quarter: 2020Q4

REPORT INFORMATION
  Report Type: Spontaneous
  Country: US (occurrence: US)
  Receive Date: 20201008
  Receipt Date: 20201019
  Transmission Date: 20210114
  Serious: No
  Sender: FDA-Public Use
  Company Number: US-PFIZER INC-2020368340

PATIENT
  Age: 59 Year
  Sex: Male

DRUGS (1)
  1. EUCRISA [Suspect]
     Active Substance: CRISABOROLE
     Dosage: UNK, 3X/DAY (APPLY TID (THREE TIMES A DAY) TO BILATERAL, FOREARMS + SHINS)
     Route: 061

REACTIONS (5)
  - Dermatitis [Unknown]
  - Pain [Unknown]
  - Off label use [Unknown]
  - Rash [Unknown]
  - Feeling abnormal [Unknown]
